FAERS Safety Report 5409000-6 (Version None)
Quarter: 2007Q3

REPORT INFORMATION
  Report Type: 
  Country: None (occurrence: None)
  Receive Date: 20070808
  Receipt Date: 20070726
  Transmission Date: 20080115
  Serious: Yes (Hospitalization)
  Sender: FDA-Public Use
  Company Number: US-SHR-US-2007-028607

PATIENT
  Age: 23 Year
  Sex: Female

DRUGS (2)
  1. BETASERON [Suspect]
     Dosage: 8 MIU, EVERY 2D
     Route: 058
     Dates: start: 20070118
  2. ANTIEPILEPTICS [Concomitant]
     Indication: MUSCLE SPASMS

REACTIONS (3)
  - GASTROINTESTINAL DISORDER [None]
  - HAEMORRHOIDS [None]
  - MULTIPLE SCLEROSIS [None]
